FAERS Safety Report 6145382-8 (Version None)
Quarter: 2009Q2

REPORT INFORMATION
  Report Type: 
  Country: None (occurrence: None)
  Receive Date: 20090402
  Receipt Date: 20090323
  Transmission Date: 20091009
  Serious: Yes (Hospitalization)
  Sender: FDA-Public Use
  Company Number: CHPA2009US07842

PATIENT
  Age: 57 Year
  Sex: Female
  Weight: 81.2 kg

DRUGS (6)
  1. THERAFLU FLU AND CHEST CONGESTION WITHOUT PSE (NCH) (GUAIFENESIN, PARA [Suspect]
     Indication: COUGH
     Dosage: 1 DF, QD, ORAL
     Route: 048
     Dates: start: 20090321, end: 20090323
  2. THERAFLU FLU AND CHEST CONGESTION WITHOUT PSE (NCH) (GUAIFENESIN, PARA [Suspect]
     Indication: PAIN
     Dosage: 1 DF, QD, ORAL
     Route: 048
     Dates: start: 20090321, end: 20090323
  3. DIOVAN [Concomitant]
  4. FELDENE [Concomitant]
  5. INSULIN (INSULIN) [Concomitant]
  6. DRUG THERAPY NOS (DRUG THERAPY NOS) [Concomitant]

REACTIONS (3)
  - BLOOD GLUCOSE INCREASED [None]
  - FOOT AMPUTATION [None]
  - LOCALISED INFECTION [None]
